FAERS Safety Report 7000755-6 (Version None)
Quarter: 2010Q3

REPORT INFORMATION
  Report Type: 
  Country: None (occurrence: None)
  Receive Date: 20100920
  Receipt Date: 20100330
  Transmission Date: 20110219
  Serious: Yes (Other)
  Sender: FDA-Public Use
  Company Number: US-ASTRAZENECA-2006UW04823

PATIENT
  Age: 518 Month
  Sex: Female
  Weight: 83.7 kg

DRUGS (13)
  1. SEROQUEL [Suspect]
     Indication: BIPOLAR DISORDER
     Dosage: 25 TO 300 MG
     Route: 048
     Dates: start: 20040227
  2. SEROQUEL [Suspect]
     Indication: MANIA
     Dosage: 25 TO 300 MG
     Route: 048
     Dates: start: 20040227
  3. SEROQUEL [Suspect]
     Indication: DEPRESSION
     Dosage: 25 TO 300 MG
     Route: 048
     Dates: start: 20040227
  4. ZYPREXA [Suspect]
     Indication: BIPOLAR DISORDER
     Route: 048
     Dates: start: 20020101, end: 20040201
  5. ZYPREXA [Suspect]
     Indication: MANIA
     Route: 048
     Dates: start: 20020101, end: 20040201
  6. ZYPREXA [Suspect]
     Indication: DEPRESSION
     Route: 048
     Dates: start: 20020101, end: 20040201
  7. ABILIFY [Concomitant]
  8. GEODON [Concomitant]
  9. HALDOL [Concomitant]
  10. NAVANE [Concomitant]
  11. LISINOPRIL [Concomitant]
     Dates: start: 20051223
  12. PRILOSEC [Concomitant]
     Dates: start: 20051223
  13. AMITRIPTYLINE [Concomitant]
     Dates: start: 20040214

REACTIONS (4)
  - BLOOD GLUCOSE INCREASED [None]
  - DIABETES MELLITUS [None]
  - DIABETES MELLITUS INADEQUATE CONTROL [None]
  - TYPE 1 DIABETES MELLITUS [None]
